FAERS Safety Report 11678880 (Version 2)
Quarter: 2015Q4

REPORT INFORMATION
  Report Type: Report from Study
  Country: BR (occurrence: BR)
  Receive Date: 20151028
  Receipt Date: 20151110
  Transmission Date: 20160304
  Serious: Yes (Hospitalization)
  Sender: FDA-Public Use
  Company Number: BR-CONCORDIA PHARMACEUTICALS INC.-CO-ZN-BR-2015-064

PATIENT
  Age: 21 Year
  Sex: Male
  Weight: 71.5 kg

DRUGS (2)
  1. TAFENOQUINE VS PLACEBO (CODE NOT BROKEN) [Suspect]
     Active Substance: TAFENOQUINE
     Indication: PLASMODIUM VIVAX INFECTION
     Route: 048
     Dates: start: 20150128
  2. PRIMAQUINE VS PLACEBO (CODE NOT BROKEN) [Suspect]
     Active Substance: PRIMAQUINE PHOSPHATE

REACTIONS (1)
  - Gastroenteritis [Recovered/Resolved]

NARRATIVE: CASE EVENT DATE: 20150405
